FAERS Safety Report 15678021 (Version 1)
Quarter: 2018Q4

REPORT INFORMATION
  Report Type: Report from Study
  Country: US (occurrence: US)
  Receive Date: 20181130
  Receipt Date: 20181130
  Transmission Date: 20190205
  Serious: Yes (Hospitalization, Other)
  Sender: FDA-Public Use
  Company Number: US-MYLANLABS-2018M1089495

PATIENT
  Age: 40 Year
  Sex: Female
  Weight: 47 kg

DRUGS (5)
  1. INOTUZUMAB OZOGAMICIN [Suspect]
     Active Substance: INOTUZUMAB OZOGAMICIN
     Dosage: 0.8 MICROGRAM/SQ. METER, CYCLE (OVER 60 MINS ON DAY 8 AND DAY 15)
     Route: 042
     Dates: start: 201810
  2. INOTUZUMAB OZOGAMICIN [Suspect]
     Active Substance: INOTUZUMAB OZOGAMICIN
     Indication: ACUTE LYMPHOCYTIC LEUKAEMIA
     Dosage: 0.8 MICROGRAM/SQ. METER, CYCLE (OVER 60 MINS ON DAY 1)
     Route: 042
     Dates: start: 20181024, end: 20181024
  3. VINCRISTINE [Concomitant]
     Active Substance: VINCRISTINE
     Indication: ACUTE LYMPHOCYTIC LEUKAEMIA
     Dosage: 1.4 MG /M2 (MAX 2 MG) OVER 10 MINS ON DAY 1
     Route: 042
     Dates: start: 20181024, end: 20181024
  4. CYCLOPHOSPHAMIDE. [Suspect]
     Active Substance: CYCLOPHOSPHAMIDE
     Indication: ACUTE LYMPHOCYTIC LEUKAEMIA
     Dosage: 750 MG/M2, CYCLIC OVER 1 HOUR ON DAY
     Route: 042
     Dates: start: 20181024, end: 20181024
  5. PREDNISONE TABLETS USP [Suspect]
     Active Substance: PREDNISONE
     Indication: ACUTE LYMPHOCYTIC LEUKAEMIA
     Dosage: 100 MILLIGRAM, CYCLE (ON DAYS 1-5)
     Route: 048
     Dates: start: 20181024, end: 20181128

REACTIONS (4)
  - Tachycardia [Unknown]
  - Sepsis [Recovered/Resolved]
  - Enterococcal infection [Recovered/Resolved]
  - Hypotension [Unknown]

NARRATIVE: CASE EVENT DATE: 20181026
